FAERS Safety Report 9121243 (Version 1)
Quarter: 2013Q1

REPORT INFORMATION
  Report Type: Spontaneous
  Country: BR (occurrence: BR)
  Receive Date: 20130225
  Receipt Date: 20130225
  Transmission Date: 20140127
  Serious: Yes (Hospitalization, Other)
  Sender: FDA-Public Use
  Company Number: BR-BRISTOL-MYERS SQUIBB COMPANY-17388406

PATIENT
  Age: 83 Year
  Sex: Female
  Weight: 88 kg

DRUGS (4)
  1. AVAPRO TABS 150 MG [Suspect]
     Indication: HYPERTENSION
     Dosage: 1DF:1TABS
     Route: 048
  2. GALVUS [Concomitant]
     Indication: DIABETES MELLITUS
     Dosage: 1DF:1TAB
     Route: 048
  3. SEROQUEL [Concomitant]
     Indication: ANXIETY
     Dosage: 1DF:1TAB
     Route: 048
  4. OLCADIL [Concomitant]
     Indication: ANXIETY
     Dosage: 1DF:1TAB
     Route: 048

REACTIONS (4)
  - Femur fracture [Not Recovered/Not Resolved]
  - Hip fracture [Not Recovered/Not Resolved]
  - Fall [Not Recovered/Not Resolved]
  - Device related infection [Not Recovered/Not Resolved]
